FAERS Safety Report 9319429 (Version 1)
Quarter: 2013Q1

REPORT INFORMATION
  Report Type: Spontaneous
  Country: PR (occurrence: None)
  Receive Date: 20121210
  Receipt Date: 20121210
  Transmission Date: 20140127
  Serious: Yes (Disabling, Other)
  Sender: FDA-Public Use
  Company Number: ACO_33182_2012

PATIENT
  Age: 53 Year
  Sex: Female

DRUGS (4)
  1. AMPYRA (DALFAMPRIDINE) TABLET, 10 MG [Suspect]
     Indication: PRODUCT USED FOR UNKNOWN INDICATION
     Dosage: Q 12 HRS
     Route: 048
     Dates: start: 20121107, end: 20121115
  2. TYSABRI (NATALIZUMAB) [Concomitant]
  3. BACLOFEN (BACLOFEN) (BACLOFEN) [Concomitant]
  4. DITROPAN (OXYBUTYNIN HYDROCHLORIDE) [Concomitant]

REACTIONS (6)
  - Hepatitis [None]
  - Abasia [None]
  - Blood glucose increased [None]
  - Feeling hot [None]
  - Influenza like illness [None]
  - Muscle rigidity [None]
